FAERS Safety Report 4557869-X (Version None)
Quarter: 2005Q1

REPORT INFORMATION
  Report Type: 
  Country: None (occurrence: None)
  Receive Date: 20050121
  Receipt Date: 20021219
  Transmission Date: 20050727
  Serious: Yes (Other)
  Sender: FDA-Public Use
  Company Number: US-BRISTOL-MYERS SQUIBB COMPANY-12141735

PATIENT
  Age: 36 Year
  Sex: Female

DRUGS (3)
  1. SERZONE [Suspect]
     Indication: DEPRESSION
     Route: 048
     Dates: start: 19980901, end: 20020201
  2. XANAX [Concomitant]
     Dosage: 4 MG IN THE MORNING AND 1 AT BEDTIME
     Route: 048
  3. DESYREL [Concomitant]
     Route: 048

REACTIONS (1)
  - HEPATOCELLULAR DAMAGE [None]
